FAERS Safety Report 9144586 (Version 1)
Quarter: 2013Q1

REPORT INFORMATION
  Report Type: Spontaneous
  Country: FR (occurrence: FR)
  Receive Date: 20130306
  Receipt Date: 20130306
  Transmission Date: 20140127
  Serious: Yes (Life-Threatening, Hospitalization)
  Sender: FDA-Public Use
  Company Number: FR-ROCHE-1196196

PATIENT
  Age: 60 Year
  Sex: Male

DRUGS (7)
  1. VALIUM [Suspect]
     Indication: PRODUCT USED FOR UNKNOWN INDICATION
     Route: 048
     Dates: end: 20130119
  2. ALPRAZOLAM [Suspect]
     Indication: PRODUCT USED FOR UNKNOWN INDICATION
     Route: 048
     Dates: end: 20130119
  3. THERALENE [Suspect]
     Indication: PRODUCT USED FOR UNKNOWN INDICATION
     Route: 048
     Dates: end: 20130119
  4. DEPAKINE [Concomitant]
     Route: 065
  5. EUPANTOL [Concomitant]
     Route: 065
  6. HYDROCORTISONE [Concomitant]
  7. ANEXATE [Concomitant]

REACTIONS (3)
  - Coma [Recovered/Resolved]
  - Pneumonia aspiration [Recovered/Resolved]
  - Rhabdomyolysis [Recovered/Resolved]
